FAERS Safety Report 9329419 (Version 2)
Quarter: 2013Q3

REPORT INFORMATION
  Report Type: Spontaneous
  Country: KZ (occurrence: KZ)
  Receive Date: 20130604
  Receipt Date: 20130815
  Transmission Date: 20140515
  Serious: Yes (Other)
  Sender: FDA-Public Use
  Company Number: KZ-VIIV HEALTHCARE LIMITED-B0896635A

PATIENT
  Age: 29 Year
  Sex: Female
  Weight: 53 kg

DRUGS (3)
  1. ZIAGEN [Suspect]
     Indication: HIV INFECTION
     Dosage: 300MG UNKNOWN
     Route: 048
     Dates: start: 20121001, end: 20121015
  2. VIREAD [Concomitant]
     Indication: HIV INFECTION
     Dosage: 300MG PER DAY
     Route: 048
     Dates: start: 20121001, end: 20121017
  3. ALUVIA [Concomitant]
     Indication: HIV INFECTION
     Route: 048
     Dates: start: 20121001, end: 20121017

REACTIONS (1)
  - Angioedema [Recovered/Resolved]
